FAERS Safety Report 8522490-5 (Version None)
Quarter: 2012Q3

REPORT INFORMATION
  Report Type: 
  Country: None (occurrence: None)
  Receive Date: 20120719
  Receipt Date: 20120713
  Transmission Date: 20120928
  Serious: Yes (Hospitalization, Other)
  Sender: FDA-Public Use
  Company Number: JP-ABBOTT-12P-087-0936375-00

PATIENT
  Sex: Female
  Weight: 60 kg

DRUGS (6)
  1. CLARITHROMYCIN [Suspect]
     Indication: HELICOBACTER INFECTION
     Route: 048
     Dates: start: 20110907, end: 20110913
  2. RABEPRAZOLE SODIUM [Concomitant]
     Indication: PROPHYLAXIS
  3. PREVPAC [Suspect]
     Indication: HELICOBACTER INFECTION
     Dosage: 400 MG 2 TABLETS IN 2 DIVIDED DOSES
     Dates: start: 20110907, end: 20110913
  4. RABEPRAZOLE SODIUM [Concomitant]
     Indication: HELICOBACTER INFECTION
  5. AMOXICILLIN [Suspect]
     Indication: HELICOBACTER INFECTION
     Route: 048
     Dates: start: 20110907, end: 20110913
  6. LANSOPRAZOLE [Suspect]
     Indication: HELICOBACTER INFECTION
     Route: 048
     Dates: start: 20110907, end: 20110913

REACTIONS (2)
  - DRUG ERUPTION [None]
  - ERYTHEMA MULTIFORME [None]
